FAERS Safety Report 7418890-7 (Version None)
Quarter: 2011Q2

REPORT INFORMATION
  Report Type: 
  Country: None (occurrence: None)
  Receive Date: 20110415
  Receipt Date: 20110413
  Transmission Date: 20111010
  Serious: Yes (Hospitalization)
  Sender: FDA-Public Use
  Company Number: JP-ABBOTT-11P-087-0718807-00

PATIENT
  Sex: Female

DRUGS (6)
  1. PREDNISOLONE [Concomitant]
     Indication: RHEUMATOID ARTHRITIS
     Route: 048
     Dates: start: 20100426
  2. HUMIRA [Suspect]
     Indication: RHEUMATOID ARTHRITIS
     Route: 058
     Dates: start: 20090930, end: 20101210
  3. MIZORIBINE [Concomitant]
     Indication: RHEUMATOID ARTHRITIS
     Dates: end: 20110303
  4. ALENDRONATE SODIUM [Concomitant]
     Indication: PRODUCT USED FOR UNKNOWN INDICATION
     Dosage: 35MG/W
     Dates: start: 20100426
  5. SULFAMETHOXAZOLE W/TRIMETHOPRIM [Concomitant]
     Indication: INFECTION PROPHYLAXIS
  6. ZOLPIDEM TARTRATE [Concomitant]
     Indication: PRODUCT USED FOR UNKNOWN INDICATION
     Dates: end: 20100426

REACTIONS (2)
  - DECREASED APPETITE [None]
  - HYPOPHAGIA [None]
